FAERS Safety Report 15363872 (Version 1)
Quarter: 2018Q3

REPORT INFORMATION
  Report Type: Spontaneous
  Country: US (occurrence: US)
  Receive Date: 20180831
  Receipt Date: 20180831
  Transmission Date: 20181010
  Serious: Yes (Hospitalization)
  Sender: FDA-Public Use
  Company Number: None

PATIENT
  Age: 61 Year
  Sex: Female

DRUGS (14)
  1. OYSTER SHELL [Concomitant]
     Active Substance: OSTREA EDULIS SHELL
  2. ZYRTEC [Concomitant]
     Active Substance: CETIRIZINE HYDROCHLORIDE
  3. CORISOPRODOL [Concomitant]
  4. DOK [Concomitant]
     Active Substance: DOCUSATE SODIUM
  5. ONDANSETRON [Concomitant]
     Active Substance: ONDANSETRON
  6. OPSUMIT [Concomitant]
     Active Substance: MACITENTAN
  7. LORATADINE. [Concomitant]
     Active Substance: LORATADINE
  8. PANTOPRAZOLE [Concomitant]
     Active Substance: PANTOPRAZOLE
  9. VITAMIN D [Concomitant]
     Active Substance: CHOLECALCIFEROL
  10. MILRINON/DS [Concomitant]
  11. ADCIRCA [Suspect]
     Active Substance: TADALAFIL
     Indication: PULMONARY ARTERIAL HYPERTENSION
     Route: 048
     Dates: start: 20140319
  12. RANITIDINE. [Concomitant]
     Active Substance: RANITIDINE
  13. SOMA [Concomitant]
     Active Substance: CARISOPRODOL
  14. TRAMADOL. [Concomitant]
     Active Substance: TRAMADOL

REACTIONS (1)
  - Ulcer haemorrhage [None]

NARRATIVE: CASE EVENT DATE: 20180715
